FAERS Safety Report 16207254 (Version 1)
Quarter: 2019Q2

REPORT INFORMATION
  Report Type: Spontaneous
  Country: US (occurrence: US)
  Receive Date: 20190313
  Receipt Date: 20190313
  Transmission Date: 20190711
  Serious: Yes (Disabling, Other)
  Sender: FDA-Public Use
  Company Number: None

PATIENT
  Age: 36 Year
  Sex: Female
  Weight: 50.8 kg

DRUGS (1)
  1. MIRALAX [Suspect]
     Active Substance: POLYETHYLENE GLYCOL 3350
     Indication: CONSTIPATION
     Route: 048
     Dates: start: 20160301, end: 20190301

REACTIONS (8)
  - Anxiety [None]
  - Gastrooesophageal reflux disease [None]
  - Back pain [None]
  - Gastrointestinal disorder [None]
  - Anal spasm [None]
  - Neck pain [None]
  - Inflammation [None]
  - Depression [None]

NARRATIVE: CASE EVENT DATE: 20190301
